FAERS Safety Report 8201707-0 (Version None)
Quarter: 2012Q1

REPORT INFORMATION
  Report Type: 
  Country: None (occurrence: None)
  Receive Date: 20120312
  Receipt Date: 20120308
  Transmission Date: 20120608
  Serious: Yes (Other)
  Sender: FDA-Public Use
  Company Number: JP-PFIZER INC-2012033840

PATIENT
  Age: 2 Year
  Sex: Female
  Weight: 30 kg

DRUGS (3)
  1. CYCLOSPORINE [Suspect]
     Indication: NEPHROTIC SYNDROME
     Dosage: 3 MG/KG, UNK
     Route: 048
  2. CYCLOSPORINE [Suspect]
     Dosage: 6 MG/KG, UNK
  3. METHYLPREDNISOLONE SODIUM SUCCINATE [Suspect]
     Indication: NEPHROTIC SYNDROME
     Dosage: 375 MG/KG, UNK

REACTIONS (1)
  - POSTERIOR REVERSIBLE ENCEPHALOPATHY SYNDROME [None]
